FAERS Safety Report 6998693-8 (Version None)
Quarter: 2010Q3

REPORT INFORMATION
  Report Type: 
  Country: None (occurrence: None)
  Receive Date: 20100920
  Receipt Date: 20100514
  Transmission Date: 20110219
  Serious: Yes (Other)
  Sender: FDA-Public Use
  Company Number: US-ASTRAZENECA-2009UW20570

PATIENT
  Age: 43 Year
  Sex: Female
  Weight: 127 kg

DRUGS (8)
  1. SEROQUEL [Suspect]
     Indication: SLEEP DISORDER
     Route: 048
     Dates: start: 20030101, end: 20080407
  2. SEROQUEL [Suspect]
     Indication: DEPRESSION
     Route: 048
     Dates: start: 20030101, end: 20080407
  3. DOXEPIN HCL [Concomitant]
     Indication: BIPOLAR DISORDER
     Dosage: 50-100MG
     Dates: start: 20050101
  4. DOXEPIN HCL [Concomitant]
     Indication: DEPRESSION
     Dosage: 50-100MG
     Dates: start: 20050101
  5. BENZTROPINE MESYLATE [Concomitant]
     Indication: DEPRESSION
     Dates: start: 20050101
  6. HYDROYZIN [Concomitant]
     Indication: DEPRESSION
     Dates: start: 20050101
  7. SIMVASTATIN [Concomitant]
     Indication: BLOOD CHOLESTEROL INCREASED
     Dates: start: 20080101
  8. SIMVASTATIN [Concomitant]
     Indication: HYPERLIPIDAEMIA
     Dates: start: 20080101

REACTIONS (6)
  - BLOOD CHOLESTEROL INCREASED [None]
  - DYSKINESIA [None]
  - HYPERLIPIDAEMIA [None]
  - PALPITATIONS [None]
  - PANCREATITIS [None]
  - TYPE 2 DIABETES MELLITUS [None]
